FAERS Safety Report 6660377-3 (Version None)
Quarter: 2010Q1

REPORT INFORMATION
  Report Type: 
  Country: None (occurrence: None)
  Receive Date: 20100330
  Receipt Date: 20100330
  Transmission Date: 20100710
  Serious: Yes (Other)
  Sender: FDA-Public Use
  Company Number: None

PATIENT
  Sex: Female
  Weight: 71.6683 kg

DRUGS (1)
  1. LEVAQUIN [Suspect]
     Indication: INFECTION PROPHYLAXIS
     Dosage: 500MG DAILY 22 DAYS
     Dates: start: 20091111, end: 20091202

REACTIONS (5)
  - GAIT DISTURBANCE [None]
  - JOINT SWELLING [None]
  - MENISCUS LESION [None]
  - PAIN [None]
  - TENDONITIS [None]
